FAERS Safety Report 9519433 (Version 3)
Quarter: 2013Q4

REPORT INFORMATION
  Report Type: Spontaneous
  Country: US (occurrence: US)
  Receive Date: 20130912
  Receipt Date: 20131101
  Transmission Date: 20140711
  Serious: Yes (Other)
  Sender: FDA-Public Use
  Company Number: US-GLAXOSMITHKLINE-A1041203A

PATIENT
  Sex: Male
  Weight: 77.3 kg

DRUGS (7)
  1. AVANDAMET [Suspect]
     Indication: TYPE 2 DIABETES MELLITUS
     Route: 048
     Dates: end: 2006
  2. AVANDIA [Suspect]
     Indication: TYPE 2 DIABETES MELLITUS
     Route: 048
     Dates: end: 20120820
  3. METFORMIN [Suspect]
     Indication: TYPE 2 DIABETES MELLITUS
     Route: 065
     Dates: end: 20120816
  4. CONCURRENT MEDICATIONS [Suspect]
     Indication: PRODUCT USED FOR UNKNOWN INDICATION
     Route: 065
  5. EYE DROPS [Suspect]
     Indication: PRODUCT USED FOR UNKNOWN INDICATION
     Route: 047
  6. LASIX [Concomitant]
     Indication: FLUID RETENTION
  7. POTASSIUM [Concomitant]

REACTIONS (24)
  - Renal impairment [Recovering/Resolving]
  - Cardiac failure congestive [Not Recovered/Not Resolved]
  - Cognitive disorder [Recovering/Resolving]
  - Mental impairment [Recovering/Resolving]
  - Blindness unilateral [Not Recovered/Not Resolved]
  - Hypoacusis [Not Recovered/Not Resolved]
  - Cerebrovascular accident [Unknown]
  - General physical health deterioration [Recovering/Resolving]
  - Blood creatinine increased [Recovering/Resolving]
  - Feeling abnormal [Recovering/Resolving]
  - Weight increased [Recovering/Resolving]
  - Oedema peripheral [Recovering/Resolving]
  - Skin exfoliation [Recovering/Resolving]
  - Anaemia [Recovering/Resolving]
  - Asthenia [Recovering/Resolving]
  - Aphasia [Recovering/Resolving]
  - Hypersomnia [Recovering/Resolving]
  - Somnolence [Recovering/Resolving]
  - Incontinence [Recovering/Resolving]
  - Fluid retention [Recovering/Resolving]
  - Weight decreased [Unknown]
  - Blood glucose fluctuation [Not Recovered/Not Resolved]
  - Glycosylated haemoglobin increased [Not Recovered/Not Resolved]
  - Labelled drug-drug interaction medication error [Unknown]
